FAERS Safety Report 18108691 (Version 1)
Quarter: 2020Q3

REPORT INFORMATION
  Report Type: Spontaneous
  Country: US (occurrence: US)
  Receive Date: 20200804
  Receipt Date: 20200804
  Transmission Date: 20201103
  Serious: Yes (Hospitalization)
  Sender: FDA-Public Use
  Company Number: None

PATIENT
  Age: 29 Year
  Sex: Male
  Weight: 79 kg

DRUGS (4)
  1. ETOPOSIDE (VP?16) [Suspect]
     Active Substance: ETOPOSIDE
     Dates: end: 20200711
  2. TAXOL [Suspect]
     Active Substance: PACLITAXEL
     Dates: end: 20200612
  3. CARBOPLATIN. [Suspect]
     Active Substance: CARBOPLATIN
     Dates: start: 20200711
  4. IFOSFAMIDE. [Suspect]
     Active Substance: IFOSFAMIDE
     Dates: end: 20200614

REACTIONS (1)
  - Enterocolitis [None]

NARRATIVE: CASE EVENT DATE: 20200721
